FAERS Safety Report 7971669-X (Version None)
Quarter: 2011Q4

REPORT INFORMATION
  Report Type: 
  Country: None (occurrence: None)
  Receive Date: 20111209
  Receipt Date: 20111209
  Transmission Date: 20120403
  Serious: Yes (Hospitalization)
  Sender: FDA-Public Use
  Company Number: None

PATIENT
  Age: 80 Month
  Sex: Male
  Weight: 60 kg

DRUGS (1)
  1. NAPROXEN [Suspect]
     Indication: PAIN
     Dosage: 375 BID PO
     Route: 048
     Dates: start: 20110914, end: 20111125

REACTIONS (1)
  - DUODENAL ULCER HAEMORRHAGE [None]
